FAERS Safety Report 7345193-1 (Version None)
Quarter: 2011Q1

REPORT INFORMATION
  Report Type: 
  Country: None (occurrence: None)
  Receive Date: 20110310
  Receipt Date: 20110301
  Transmission Date: 20110831
  Serious: No
  Sender: FDA-Public Use
  Company Number: US-CEPHALON-2009010075

PATIENT
  Sex: Male

DRUGS (15)
  1. FENTORA [Suspect]
     Indication: COMPLEX REGIONAL PAIN SYNDROME
     Route: 002
  2. FENTORA [Suspect]
     Indication: NECK PAIN
  3. LIDODERM [Concomitant]
     Route: 062
  4. KADIAN [Concomitant]
  5. FOSAMAX [Concomitant]
     Dates: start: 20080513
  6. ROXANOL [Concomitant]
  7. CLONAZEPAM [Concomitant]
  8. NEXIUM [Concomitant]
     Dates: start: 20080417
  9. OXYFAST [Concomitant]
     Dates: start: 20080417
  10. SENNA [Concomitant]
     Dates: start: 20070907
  11. MULTIVITAMIN [Concomitant]
  12. ANDROGEL [Concomitant]
  13. FENTORA [Suspect]
     Indication: INTERVERTEBRAL DISC DEGENERATION
  14. DILAUDID [Concomitant]
  15. CLONIDINE [Concomitant]
     Dates: start: 20070517

REACTIONS (1)
  - DRUG PRESCRIBING ERROR [None]
